FAERS Safety Report 13426627 (Version 1)
Quarter: 2017Q2

REPORT INFORMATION
  Report Type: Spontaneous
  Country: US (occurrence: US)
  Receive Date: 20170411
  Receipt Date: 20170411
  Transmission Date: 20170830
  Serious: No
  Sender: FDA-Public Use
  Company Number: US-TAKEDA-2017MPI003107

PATIENT
  Sex: Male
  Weight: 69.84 kg

DRUGS (1)
  1. NINLARO [Suspect]
     Active Substance: IXAZOMIB
     Indication: BREAST CANCER METASTATIC
     Dosage: 3 MG, UNK
     Route: 048
     Dates: start: 20170310

REACTIONS (2)
  - Fatigue [Unknown]
  - Off label use [Unknown]
